FAERS Safety Report 17075068 (Version 3)
Quarter: 2020Q1

REPORT INFORMATION
  Report Type: Report from Study
  Country: US (occurrence: US)
  Receive Date: 20191126
  Receipt Date: 20200106
  Transmission Date: 20200409
  Serious: Yes (Hospitalization, Other)
  Sender: FDA-Public Use
  Company Number: PHHY2018US041274

PATIENT
  Age: 44 Year
  Sex: Female
  Weight: 81.6 kg

DRUGS (2)
  1. ANCEF [Concomitant]
     Active Substance: CEFAZOLIN SODIUM
     Indication: PROPHYLAXIS
     Dosage: UNK
     Route: 065
     Dates: start: 20180301, end: 20180301
  2. GILENYA [Suspect]
     Active Substance: FINGOLIMOD HYDROCHLORIDE
     Indication: MULTIPLE SCLEROSIS
     Dosage: 0.5 MG, UNK
     Route: 048
     Dates: start: 20150212

REACTIONS (10)
  - Post procedural complication [Recovered/Resolved]
  - Radiculopathy [Recovered/Resolved]
  - Vertebral foraminal stenosis [Recovered/Resolved]
  - Back pain [Recovered/Resolved]
  - Pain [Recovered/Resolved]
  - Intervertebral disc protrusion [Recovered/Resolved]
  - Lymphocyte count decreased [Not Recovered/Not Resolved]
  - Procedural pain [Recovered/Resolved]
  - Nail infection [Recovered/Resolved]
  - White blood cell count decreased [Unknown]

NARRATIVE: CASE EVENT DATE: 201611
